FAERS Safety Report 23297292 (Version 1)
Quarter: 2023Q4

REPORT INFORMATION
  Report Type: Spontaneous
  Country: GB (occurrence: GB)
  Receive Date: 20231214
  Receipt Date: 20231214
  Transmission Date: 20240110
  Serious: Yes (Disabling)
  Sender: FDA-Public Use
  Company Number: GB-MHRA-MED-202306172355218180-VFYSC

PATIENT
  Age: 33 Year
  Sex: Female
  Weight: 60 kg

DRUGS (7)
  1. BISACODYL [Suspect]
     Active Substance: BISACODYL
     Indication: Irritable bowel syndrome
     Dates: start: 20230616, end: 20230617
  2. ESCITALOPRAM [Concomitant]
     Active Substance: ESCITALOPRAM OXALATE
     Indication: Depression suicidal
  3. LORAZEPAM [Concomitant]
     Active Substance: LORAZEPAM
     Indication: Suicidal ideation
  4. METHYLPHENIDATE [Concomitant]
     Active Substance: METHYLPHENIDATE
  5. PROPRANOLOL [Concomitant]
     Active Substance: PROPRANOLOL HYDROCHLORIDE
     Indication: Postural orthostatic tachycardia syndrome
  6. QUETIAPINE [Concomitant]
     Active Substance: QUETIAPINE
     Indication: Depression suicidal
  7. VORTIOXETINE [Concomitant]
     Active Substance: VORTIOXETINE
     Indication: Major depression

REACTIONS (8)
  - Nausea [Not Recovered/Not Resolved]
  - Eructation [Not Recovered/Not Resolved]
  - Gastrointestinal pain [Not Recovered/Not Resolved]
  - Abdominal distension [Not Recovered/Not Resolved]
  - Feeding disorder [Not Recovered/Not Resolved]
  - Back pain [Not Recovered/Not Resolved]
  - Insomnia [Not Recovered/Not Resolved]
  - Flatulence [Not Recovered/Not Resolved]
